FAERS Safety Report 9492543 (Version 1)
Quarter: 2013Q3

REPORT INFORMATION
  Report Type: Spontaneous
  Country: US (occurrence: US)
  Receive Date: 20130830
  Receipt Date: 20130830
  Transmission Date: 20140515
  Serious: Yes (Hospitalization, Other)
  Sender: FDA-Public Use
  Company Number: US-ELI_LILLY_AND_COMPANY-US201308007845

PATIENT
  Sex: Female
  Weight: 73.02 kg

DRUGS (3)
  1. HUMALOG LISPRO [Suspect]
     Dosage: UNK
     Route: 058
  2. HUMALOG LISPRO [Suspect]
     Dosage: UNK
     Route: 042
  3. HUMALOG LISPRO [Suspect]
     Dosage: UNK
     Route: 058

REACTIONS (5)
  - Diabetic ketoacidosis [Unknown]
  - Blood magnesium decreased [Unknown]
  - Malaise [Unknown]
  - Gastroenteritis viral [Unknown]
  - White blood cell count increased [Unknown]
